FAERS Safety Report 16852508 (Version 1)
Quarter: 2019Q3

REPORT INFORMATION
  Report Type: Spontaneous
  Country: US (occurrence: US)
  Receive Date: 20190925
  Receipt Date: 20190925
  Transmission Date: 20191005
  Serious: No
  Sender: FDA-Public Use
  Company Number: US-SA-2019SA262597

PATIENT
  Sex: Female

DRUGS (2)
  1. DUPIXENT [Suspect]
     Active Substance: DUPILUMAB
     Indication: DERMATITIS ATOPIC
     Dosage: 300 MG, QOW
     Route: 058
  2. DUPIXENT [Suspect]
     Active Substance: DUPILUMAB
     Dosage: 200 UNK
     Route: 058

REACTIONS (5)
  - Urticaria [Recovered/Resolved]
  - Pruritus [Unknown]
  - Lip pruritus [Recovered/Resolved]
  - Eyelids pruritus [Recovered/Resolved]
  - Pruritus [Recovered/Resolved]
